FAERS Safety Report 6944662-3 (Version None)
Quarter: 2010Q3

REPORT INFORMATION
  Report Type: 
  Country: None (occurrence: None)
  Receive Date: 20100823
  Receipt Date: 20090708
  Transmission Date: 20110219
  Serious: Yes (Hospitalization)
  Sender: FDA-Public Use
  Company Number: UK-2009-00241

PATIENT
  Age: 60 Year
  Sex: Male

DRUGS (3)
  1. LISINOPRIL [Suspect]
     Indication: HYPERTENSION
     Dosage: 10 MG (20 MG, 1 IN 1 D), 20 MG (10 MG, 1 IN 1 D)
     Dates: start: 20040101
  2. LISINOPRIL [Suspect]
     Indication: HYPERTENSION
     Dosage: 10 MG (20 MG, 1 IN 1 D), 20 MG (10 MG, 1 IN 1 D)
     Dates: start: 20070701
  3. LITHIUM [Suspect]
     Indication: MANIA
     Dosage: 600 MG (600 MG, 1 IN 1 D), 2 IN 1 D, 300 MG (1 IN 1 D)

REACTIONS (7)
  - CONFUSIONAL STATE [None]
  - DIZZINESS [None]
  - DRUG INTERACTION [None]
  - FALL [None]
  - FATIGUE [None]
  - THERAPEUTIC AGENT TOXICITY [None]
  - TREMOR [None]
